FAERS Safety Report 25263862 (Version 1)
Quarter: 2025Q2

REPORT INFORMATION
  Report Type: Spontaneous
  Country: US (occurrence: None)
  Receive Date: 20250501
  Receipt Date: 20250501
  Transmission Date: 20250716
  Serious: Yes (Disabling)
  Sender: FDA-CTU
  Company Number: None

PATIENT
  Age: 71 Year
  Sex: Female
  Weight: 65.25 kg

DRUGS (4)
  1. OMEPRAZOLE [Suspect]
     Active Substance: OMEPRAZOLE
     Indication: Gastrooesophageal reflux disease
     Dosage: FREQUENCY : TWICE A DAY;?
     Route: 048
     Dates: start: 20130504, end: 20231020
  2. ALBUTEROL [Concomitant]
     Active Substance: ALBUTEROL
  3. TYLENOL WITH CAFFEINE [Concomitant]
  4. ASPIRIN [Concomitant]
     Active Substance: ASPIRIN

REACTIONS (5)
  - Drug ineffective [None]
  - Nausea [None]
  - Fatigue [None]
  - Depressed mood [None]
  - Oral lichen planus [None]

NARRATIVE: CASE EVENT DATE: 20230503
